FAERS Safety Report 7738921-4 (Version None)
Quarter: 2011Q3

REPORT INFORMATION
  Report Type: 
  Country: None (occurrence: None)
  Receive Date: 20110909
  Receipt Date: 20110830
  Transmission Date: 20111222
  Serious: No
  Sender: FDA-Public Use
  Company Number: US-BIOGENIDEC-2010BI038430

PATIENT
  Sex: Male

DRUGS (2)
  1. FLUOXETINE [Concomitant]
     Indication: DEPRESSION
  2. TYSABRI [Suspect]
     Indication: MULTIPLE SCLEROSIS
     Route: 042
     Dates: start: 20100622, end: 20110720

REACTIONS (9)
  - VISUAL ACUITY REDUCED [None]
  - DEMENTIA [None]
  - MENTAL IMPAIRMENT [None]
  - MEMORY IMPAIRMENT [None]
  - GAIT DISTURBANCE [None]
  - ABNORMAL BEHAVIOUR [None]
  - HEARING IMPAIRED [None]
  - SCREAMING [None]
  - ANGER [None]
